FAERS Safety Report 5383145-1 (Version None)
Quarter: 2007Q3

REPORT INFORMATION
  Report Type: 
  Country: None (occurrence: None)
  Receive Date: 20070710
  Receipt Date: 20070702
  Transmission Date: 20080115
  Serious: Yes (Other)
  Sender: FDA-Public Use
  Company Number: US-ELI_LILLY_AND_COMPANY-US200707000661

PATIENT
  Age: 40 Year
  Sex: Male

DRUGS (4)
  1. BYETTA [Suspect]
     Dosage: 5 U, UNKNOWN
     Route: 058
  2. BYETTA [Suspect]
     Dosage: 10 U, UNKNOWN
     Route: 058
  3. BYETTA [Suspect]
     Dosage: 5 U, UNKNOWN
     Route: 058
  4. LANTUS [Concomitant]
     Indication: DIABETES MELLITUS
     Dosage: UNK, UNKNOWN

REACTIONS (2)
  - NAUSEA [None]
  - OESOPHAGEAL CARCINOMA [None]
